FAERS Safety Report 10154820 (Version 1)
Quarter: 2014Q2

REPORT INFORMATION
  Report Type: Spontaneous
  Country: US (occurrence: US)
  Receive Date: 20140506
  Receipt Date: 20140506
  Transmission Date: 20141212
  Serious: Yes (Other)
  Sender: FDA-Public Use
  Company Number: US-PFIZER INC-2014121600

PATIENT
  Age: 6 Week
  Sex: Female

DRUGS (1)
  1. DOXYCYCLINE HYCLATE [Suspect]
     Indication: SCLEROTHERAPY
     Dosage: 80 MG, 3 DIFFERENT INSTILLATIONS

REACTIONS (2)
  - Aspiration [Recovered/Resolved]
  - Horner^s syndrome [Recovering/Resolving]
